FAERS Safety Report 17617053 (Version 2)
Quarter: 2020Q2

REPORT INFORMATION
  Report Type: Report from Study
  Country: CA (occurrence: CA)
  Receive Date: 20200402
  Receipt Date: 20200522
  Transmission Date: 20200713
  Serious: Yes (Hospitalization)
  Sender: FDA-Public Use
  Company Number: CA-EISAI MEDICAL RESEARCH-EC-2020-071639

PATIENT
  Age: 72 Year
  Sex: Male

DRUGS (4)
  1. LENVIMA [Suspect]
     Active Substance: LENVATINIB
     Indication: HEPATOCELLULAR CARCINOMA
     Route: 048
     Dates: start: 20200219, end: 20200227
  2. LENVIMA [Suspect]
     Active Substance: LENVATINIB
     Route: 048
     Dates: start: 2020
  3. CANDESARTAN. [Concomitant]
     Active Substance: CANDESARTAN
  4. LENVIMA [Suspect]
     Active Substance: LENVATINIB
     Route: 048
     Dates: start: 20200305, end: 202003

REACTIONS (8)
  - Dizziness [Not Recovered/Not Resolved]
  - Blood pressure fluctuation [Unknown]
  - Oesophageal haemorrhage [Recovered/Resolved]
  - Abdominal distension [Recovered/Resolved]
  - Abdominal pain [Not Recovered/Not Resolved]
  - Faeces pale [Recovered/Resolved]
  - Flatulence [Recovered/Resolved]
  - Fatigue [Not Recovered/Not Resolved]

NARRATIVE: CASE EVENT DATE: 2020
